FAERS Safety Report 8078361-4 (Version None)
Quarter: 2012Q1

REPORT INFORMATION
  Report Type: 
  Country: None (occurrence: None)
  Receive Date: 20120123
  Receipt Date: 20120114
  Transmission Date: 20120608
  Serious: Yes (Other)
  Sender: FDA-Public Use
  Company Number: JPI-P-019358

PATIENT
  Age: 48 Year
  Sex: Male
  Weight: 70.7611 kg

DRUGS (16)
  1. XYREM [Suspect]
     Indication: INSOMNIA
     Dosage: 4.5; 12 GM (2.25; 6 GM, 2 IN 1 D), ORAL
     Route: 048
     Dates: start: 20051207
  2. XYREM [Suspect]
     Indication: INSOMNIA
     Dosage: 4.5; 12 GM (2.25; 6 GM, 2 IN 1 D), ORAL
     Route: 048
     Dates: start: 20050101, end: 20050101
  3. EMTRICITABINE AND TENOFOVIR DISOPROXIL FUMARATE [Concomitant]
  4. FAMOTIDINE [Concomitant]
  5. DULOXETIME HYDROCHLORIDE [Concomitant]
  6. CETIRIZINE [Concomitant]
  7. PREGABALIN [Concomitant]
  8. OXYCODONE HCL [Concomitant]
  9. BACLOFEN [Concomitant]
  10. PANTOPRAZOLE [Concomitant]
  11. RITONAVIR [Concomitant]
  12. OXYCODONE HYDROCHLORIDE [Concomitant]
  13. CLORAZEPATE DIPOTASSIUM [Concomitant]
  14. MIRATAZAPINE [Concomitant]
  15. ROSUVASTATIN CALCIUM [Concomitant]
  16. TESTOSTERONE [Concomitant]

REACTIONS (2)
  - HEADACHE [None]
  - ARTERIOVENOUS MALFORMATION [None]
